FAERS Safety Report 11279498 (Version 1)
Quarter: 2015Q3

REPORT INFORMATION
  Report Type: Spontaneous
  Country: US (occurrence: None)
  Receive Date: 20150715
  Receipt Date: 20150715
  Transmission Date: 20151125
  Serious: Yes (Hospitalization)
  Sender: FDA-Public Use
  Company Number: COM-003373

PATIENT
  Age: 22 Year
  Sex: Male
  Weight: 90.72 kg

DRUGS (1)
  1. DIPHENHYDRAMINE. [Suspect]
     Active Substance: DIPHENHYDRAMINE
     Indication: CIRCADIAN RHYTHM SLEEP DISORDER
     Dosage: ONE SOFTGEL, ONCE AT NIGHT
     Route: 048
     Dates: start: 20150625

REACTIONS (9)
  - Dizziness [None]
  - Heart rate increased [None]
  - Dysarthria [None]
  - Laceration [None]
  - Blood pressure increased [None]
  - Vomiting [None]
  - Middle insomnia [None]
  - Muscular weakness [None]
  - Fall [None]

NARRATIVE: CASE EVENT DATE: 20150626
